FAERS Safety Report 12942956 (Version 1)
Quarter: 2016Q4

REPORT INFORMATION
  Report Type: Spontaneous
  Country: DK (occurrence: DK)
  Receive Date: 20161115
  Receipt Date: 20161115
  Transmission Date: 20170207
  Serious: Yes (Other)
  Sender: FDA-Public Use
  Company Number: DK-AMGEN-DNKSP2016158517

PATIENT
  Age: 80 Year
  Sex: Male

DRUGS (16)
  1. PAMORELIN [Concomitant]
     Active Substance: TRIPTORELIN PAMOATE
  2. TOUJEO [Concomitant]
     Active Substance: INSULIN GLARGINE
  3. MEDILAX [Concomitant]
  4. AMLODIPINE [Concomitant]
     Active Substance: AMLODIPINE BESYLATE
  5. FURIX [Concomitant]
     Active Substance: FUROSEMIDE
  6. GABAPENTIN. [Concomitant]
     Active Substance: GABAPENTIN
  7. ENALAPRIL [Concomitant]
     Active Substance: ENALAPRIL
  8. INNOHEP [Concomitant]
     Active Substance: TINZAPARIN SODIUM
  9. MOVICOL [Concomitant]
     Active Substance: POLYETHYLENE GLYCOL 3350\POTASSIUM CHLORIDE\SODIUM BICARBONATE\SODIUM CHLORIDE
  10. NOVORAPID [Concomitant]
     Active Substance: INSULIN ASPART
     Indication: TYPE 1 DIABETES MELLITUS
  11. XGEVA [Suspect]
     Active Substance: DENOSUMAB
     Indication: METASTASES TO BONE
     Dosage: 120 MG, QMO
     Route: 058
  12. ONDANSETRON [Concomitant]
     Active Substance: ONDANSETRON
  13. MABLET [Concomitant]
  14. OXYCODONE [Concomitant]
     Active Substance: OXYCODONE
  15. PINEX [Concomitant]
     Active Substance: ACETAMINOPHEN
  16. SELOZOK [Concomitant]
     Active Substance: METOPROLOL SUCCINATE

REACTIONS (2)
  - Osteonecrosis of jaw [Not Recovered/Not Resolved]
  - Exposed bone in jaw [Unknown]

NARRATIVE: CASE EVENT DATE: 201604
